FAERS Safety Report 15594894 (Version 1)
Quarter: 2018Q4

REPORT INFORMATION
  Report Type: Spontaneous
  Country: US (occurrence: US)
  Receive Date: 20181106
  Receipt Date: 20181106
  Transmission Date: 20190205
  Serious: No
  Sender: FDA-Public Use
  Company Number: US-SA-2018SA304099

PATIENT
  Sex: Female

DRUGS (6)
  1. BACTRIM [Concomitant]
     Active Substance: SULFAMETHOXAZOLE\TRIMETHOPRIM
  2. METHOTREXATE. [Concomitant]
     Active Substance: METHOTREXATE
     Indication: HEPATIC ENZYME ABNORMAL
  3. DICLOFENAC [Concomitant]
     Active Substance: DICLOFENAC
  4. XELJANZ [Concomitant]
     Active Substance: TOFACITINIB CITRATE
     Dosage: 5 MG
  5. ULTRAM [TRAMADOL HYDROCHLORIDE] [Concomitant]
  6. ARAVA [Suspect]
     Active Substance: LEFLUNOMIDE
     Indication: ALOPECIA

REACTIONS (1)
  - Drug hypersensitivity [Unknown]

NARRATIVE: CASE EVENT DATE: 20181012
